FAERS Safety Report 9311394 (Version 1)
Quarter: 2013Q2

REPORT INFORMATION
  Report Type: Spontaneous
  Country: FR (occurrence: FR)
  Receive Date: 20130528
  Receipt Date: 20130528
  Transmission Date: 20140414
  Serious: Yes (Hospitalization)
  Sender: FDA-Public Use
  Company Number: FR-JNJFOC-20130514338

PATIENT
  Age: 53 Year
  Sex: Female

DRUGS (1)
  1. IXPRIM [Suspect]
     Indication: PAIN
     Route: 048
     Dates: start: 20130220, end: 20130220

REACTIONS (3)
  - Hallucination [Recovered/Resolved]
  - Vomiting [Recovered/Resolved]
  - Disorientation [Recovered/Resolved]
